FAERS Safety Report 6424286-7 (Version None)
Quarter: 2009Q4

REPORT INFORMATION
  Report Type: 
  Country: None (occurrence: None)
  Receive Date: 20091103
  Receipt Date: 20091023
  Transmission Date: 20100525
  Serious: Yes (Hospitalization)
  Sender: FDA-Public Use
  Company Number: CZ-RANBAXY-2009RR-28679

PATIENT
  Age: 79 Year
  Sex: Male

DRUGS (1)
  1. VERAPAMIL [Suspect]
     Dosage: UNK
     Route: 048

REACTIONS (6)
  - BRADYCARDIA [None]
  - COMA [None]
  - DRUG TOXICITY [None]
  - HYPOTENSION [None]
  - OLIGURIA [None]
  - OVERDOSE [None]
